FAERS Safety Report 21095085 (Version 1)
Quarter: 2022Q3

REPORT INFORMATION
  Report Type: Spontaneous
  Country: US (occurrence: US)
  Receive Date: 20220718
  Receipt Date: 20220718
  Transmission Date: 20221027
  Serious: Yes (Death, Other)
  Sender: FDA-Public Use
  Company Number: US-SA-SAC20220717000271

PATIENT
  Age: 55 Year
  Sex: Female

DRUGS (2)
  1. ZANTAC [Suspect]
     Active Substance: RANITIDINE HYDROCHLORIDE
     Indication: Erosive oesophagitis
     Dosage: UNKNOWN AT THIS TIME
     Dates: start: 200001, end: 201412
  2. ZANTAC [Suspect]
     Active Substance: RANITIDINE HYDROCHLORIDE
     Indication: Gastrooesophageal reflux disease

REACTIONS (5)
  - Breast cancer stage IV [Fatal]
  - Gastrointestinal carcinoma [Unknown]
  - Renal cancer [Unknown]
  - Lung carcinoma cell type unspecified stage I [Unknown]
  - Ovarian cancer stage I [Unknown]

NARRATIVE: CASE EVENT DATE: 20090601
